FAERS Safety Report 15353847 (Version 1)
Quarter: 2018Q3

REPORT INFORMATION
  Report Type: Spontaneous
  Country: US (occurrence: US)
  Receive Date: 20180830
  Receipt Date: 20180830
  Transmission Date: 20181010
  Serious: Yes (Other)
  Sender: FDA-Public Use
  Company Number: None

PATIENT
  Age: 55 Year
  Sex: Female
  Weight: 83.25 kg

DRUGS (3)
  1. VITAMIN D3 [Concomitant]
     Active Substance: CHOLECALCIFEROL
  2. AMLODIPINE BESYLATE. [Suspect]
     Active Substance: AMLODIPINE BESYLATE
     Indication: HYPERTENSION
     Dosage: ?          QUANTITY:1 TABLET(S);?
     Route: 048
     Dates: start: 20180822, end: 20180830
  3. ONE?A?DAY WOMEN^S MULTIVITAMIN [Concomitant]

REACTIONS (6)
  - Product quality issue [None]
  - Peripheral swelling [None]
  - Chest pain [None]
  - Fluid retention [None]
  - Swelling [None]
  - Pain in extremity [None]

NARRATIVE: CASE EVENT DATE: 20180824
